FAERS Safety Report 5318366-7 (Version None)
Quarter: 2007Q2

REPORT INFORMATION
  Report Type: 
  Country: None (occurrence: None)
  Receive Date: 20070507
  Receipt Date: 20070430
  Transmission Date: 20071010
  Serious: Yes (Other)
  Sender: FDA-Public Use
  Company Number: PHEH2007US03107

PATIENT
  Age: 54 Year
  Sex: Female
  Weight: 75.283 kg

DRUGS (13)
  1. ZOMETA [Suspect]
     Indication: MULTIPLE MYELOMA
     Dosage: 4 MG MONTHLY
     Dates: start: 20041008, end: 20070117
  2. BACTRIM DS [Concomitant]
  3. DECADRON [Concomitant]
     Dosage: 40 MG DAILY X 4 DAYS THEN 4 DAYS OFF
     Dates: start: 20061001, end: 20070301
  4. DECADRON [Concomitant]
     Dosage: 40 MG DAILY X 4 DAYS THEN 4 DAYS OFF
     Dates: start: 20041001, end: 20050101
  5. THALIDOMIDE [Concomitant]
     Indication: MULTIPLE MYELOMA
     Dosage: 150 MG, QD
     Dates: start: 20061001, end: 20070301
  6. THALIDOMIDE [Concomitant]
     Dosage: 150MG QD
     Dates: start: 20041001, end: 20050101
  7. NEXIUM [Concomitant]
     Dosage: UNK QD
  8. GINKGO [Concomitant]
  9. GLUCOSAMINE [Concomitant]
  10. CHONDROITIN SULFATE [Concomitant]
  11. MOBIC [Concomitant]
     Dosage: QD
  12. PREDNISONE TAB [Concomitant]
     Dates: start: 20050201, end: 20050801
  13. MELPHALAN [Concomitant]

REACTIONS (6)
  - GINGIVAL DISCOLOURATION [None]
  - PATHOLOGICAL FRACTURE [None]
  - PRIMARY SEQUESTRUM [None]
  - RADIOTHERAPY [None]
  - STEM CELL TRANSPLANT [None]
  - TOOTH EXTRACTION [None]
